FAERS Safety Report 6324895-X (Version None)
Quarter: 2009Q3

REPORT INFORMATION
  Report Type: 
  Country: None (occurrence: None)
  Receive Date: 20090824
  Receipt Date: 20090622
  Transmission Date: 20100115
  Serious: No
  Sender: FDA-Public Use
  Company Number: US-ABBOTT-09P-163-0581202-00

PATIENT
  Sex: Female
  Weight: 122.58 kg

DRUGS (14)
  1. NIASPAN [Suspect]
     Indication: BLOOD CHOLESTEROL INCREASED
     Route: 048
     Dates: start: 20090501, end: 20090601
  2. NIASPAN [Suspect]
     Route: 048
     Dates: start: 20090201, end: 20090501
  3. LEXAPRO [Concomitant]
     Indication: DEPRESSION
     Route: 048
  4. KLONOPIN [Concomitant]
     Indication: ANXIETY
     Route: 048
  5. VENLAFAXINE ER (EFFEXOR) [Concomitant]
     Indication: DEPRESSION
     Route: 048
  6. VENLAFAXINE ER (EFFEXOR) [Concomitant]
     Indication: ANXIETY
  7. THYROID TAB [Concomitant]
     Indication: HYPOTHYROIDISM
     Route: 048
  8. TOPAMAX [Concomitant]
     Indication: MIGRAINE
     Route: 048
  9. CELEBREX [Concomitant]
     Indication: ARTHRITIS
     Route: 048
     Dates: end: 20090619
  10. CELEBREX [Concomitant]
     Route: 048
     Dates: start: 20090619
  11. ACIPHEX [Concomitant]
     Indication: DYSPEPSIA
     Route: 048
  12. ASPIRIN [Concomitant]
     Indication: PROPHYLAXIS
     Route: 048
     Dates: start: 20090501
  13. ASPIRIN [Concomitant]
     Indication: FLUSHING
  14. RESTASIS [Concomitant]
     Indication: DRY EYE
     Route: 047

REACTIONS (3)
  - ARTHRALGIA [None]
  - GAIT DISTURBANCE [None]
  - PAIN IN EXTREMITY [None]
